FAERS Safety Report 5506281-5 (Version None)
Quarter: 2007Q4

REPORT INFORMATION
  Report Type: 
  Country: None (occurrence: None)
  Receive Date: 20071105
  Receipt Date: 20071025
  Transmission Date: 20080405
  Serious: Yes (Hospitalization)
  Sender: FDA-Public Use
  Company Number: US-JNJFOC-20071007049

PATIENT
  Sex: Female

DRUGS (5)
  1. REMICADE [Suspect]
     Indication: CROHN'S DISEASE
     Route: 042
  2. COLOZAL [Concomitant]
  3. LIPITOR [Concomitant]
  4. ENDOCORT [Concomitant]
  5. 6 MP [Concomitant]

REACTIONS (2)
  - RENAL DISORDER [None]
  - WEGENER'S GRANULOMATOSIS [None]
